FAERS Safety Report 17050244 (Version 2)
Quarter: 2019Q4

REPORT INFORMATION
  Report Type: Spontaneous
  Country: US (occurrence: US)
  Receive Date: 20191119
  Receipt Date: 20191218
  Transmission Date: 20200122
  Serious: Yes (Death)
  Sender: FDA-Public Use
  Company Number: US-NAPPMUNDI-USA-2019-0149111

PATIENT
  Age: 44 Year
  Sex: Male
  Weight: 109.75 kg

DRUGS (1)
  1. OXYCONTIN [Suspect]
     Active Substance: OXYCODONE HYDROCHLORIDE
     Indication: PRODUCT USED FOR UNKNOWN INDICATION
     Dosage: UNK
     Route: 048

REACTIONS (3)
  - Ischaemic cardiomyopathy [Fatal]
  - Overdose [Fatal]
  - Cardiac hypertrophy [Fatal]

NARRATIVE: CASE EVENT DATE: 20060430
